FAERS Safety Report 8848106 (Version 2)
Quarter: 2015Q2

REPORT INFORMATION
  Report Type: Report from Study
  Country: US (occurrence: US)
  Receive Date: 20121018
  Receipt Date: 20150407
  Transmission Date: 20150821
  Serious: Yes (Other)
  Sender: FDA-Public Use
  Company Number: US-ROCHE-1139523

PATIENT
  Age: 10 Year
  Sex: Male
  Weight: 36.5 kg

DRUGS (4)
  1. PROTROPIN [Suspect]
     Active Substance: SOMATREM
     Indication: GROWTH HORMONE DEFICIENCY
     Route: 058
     Dates: start: 198009
  2. PROTROPIN [Suspect]
     Active Substance: SOMATREM
     Indication: DWARFISM
  3. PROTROPIN [Suspect]
     Active Substance: SOMATREM
     Indication: NEUROFIBROMATOSIS
  4. PROTROPIN [Suspect]
     Active Substance: SOMATREM
     Indication: HYPOPITUITARISM

REACTIONS (6)
  - Aggression [Unknown]
  - Emotional distress [Unknown]
  - Weight gain poor [Unknown]
  - Upper respiratory tract infection [Recovered/Resolved]
  - Memory impairment [Unknown]
  - Spinal fusion surgery [Unknown]

NARRATIVE: CASE EVENT DATE: 19881007
